FAERS Safety Report 19092328 (Version 4)
Quarter: 2021Q3

REPORT INFORMATION
  Report Type: Report from Study
  Country: US (occurrence: US)
  Receive Date: 20210405
  Receipt Date: 20210828
  Transmission Date: 20211014
  Serious: Yes (Hospitalization)
  Sender: FDA-Public Use
  Company Number: NVSC2021US067958

PATIENT
  Sex: Female

DRUGS (2)
  1. ENTRESTO [Suspect]
     Active Substance: SACUBITRIL\VALSARTAN
     Dosage: UNK
     Route: 065
  2. ENTRESTO [Suspect]
     Active Substance: SACUBITRIL\VALSARTAN
     Indication: CARDIAC FAILURE
     Dosage: 100 MG, BID(49/51MG)
     Route: 048
     Dates: start: 20210309

REACTIONS (5)
  - Transient ischaemic attack [Recovering/Resolving]
  - Product dispensing error [Unknown]
  - Hypotension [Recovering/Resolving]
  - Dyspnoea [Unknown]
  - Loss of consciousness [Recovering/Resolving]
